FAERS Safety Report 7135136-8 (Version None)
Quarter: 2010Q4

REPORT INFORMATION
  Report Type: 
  Country: None (occurrence: None)
  Receive Date: 20101203
  Receipt Date: 20101201
  Transmission Date: 20110411
  Serious: Yes (Death, Life-Threatening, Hospitalization, Other)
  Sender: FDA-Public Use
  Company Number: US-ROXANE LABORATORIES, INC.-2010-RO-01568RO

PATIENT
  Age: 57 Year
  Sex: Male

DRUGS (5)
  1. DEXAMETHASONE [Suspect]
     Indication: LUNG SQUAMOUS CELL CARCINOMA STAGE IV
  2. DEXAMETHASONE [Suspect]
     Indication: EVIDENCE BASED TREATMENT
  3. OXYCODONE HCL [Suspect]
  4. FOLIC ACID [Suspect]
  5. TRIMETHOPRIM + SULFAMETHOXAZOLE [Suspect]

REACTIONS (6)
  - DEATH [None]
  - ESCHERICHIA SEPSIS [None]
  - HYPERGLYCAEMIA [None]
  - ILEUS PARALYTIC [None]
  - RESPIRATORY FAILURE [None]
  - STRONGYLOIDIASIS [None]
